FAERS Safety Report 8594604-2 (Version None)
Quarter: 2012Q3

REPORT INFORMATION
  Report Type: 
  Country: None (occurrence: None)
  Receive Date: 20120815
  Receipt Date: 20120810
  Transmission Date: 20120928
  Serious: No
  Sender: FDA-Public Use
  Company Number: US-PFIZER INC-2012195937

PATIENT
  Sex: Male

DRUGS (9)
  1. LYRICA [Suspect]
     Indication: ANKYLOSING SPONDYLITIS
     Dosage: 150 MG, 2X/DAY
     Route: 048
     Dates: start: 20100101
  2. GABAPENTIN [Suspect]
     Indication: FIBROMYALGIA
  3. LYRICA [Suspect]
     Indication: FIBROMYALGIA
  4. GABAPENTIN [Suspect]
     Indication: BACK PAIN
  5. LYRICA [Suspect]
     Indication: NECK PAIN
  6. LYRICA [Suspect]
     Indication: BACK PAIN
  7. GABAPENTIN [Suspect]
     Indication: NECK PAIN
  8. GABAPENTIN [Suspect]
     Indication: ANKYLOSING SPONDYLITIS
     Dosage: UNK
     Dates: end: 20100101
  9. DICLOFENAC [Concomitant]
     Dosage: 75 MG, 2X/DAY

REACTIONS (1)
  - BLOOD CHOLESTEROL INCREASED [None]
